FAERS Safety Report 16364267 (Version 6)
Quarter: 2022Q4

REPORT INFORMATION
  Report Type: Report from Study
  Country: ES (occurrence: ES)
  Receive Date: 20190528
  Receipt Date: 20221207
  Transmission Date: 20230113
  Serious: Yes (Hospitalization, Other)
  Sender: FDA-Public Use
  Company Number: ES-BOEHRINGERINGELHEIM-2019-BI-023481

PATIENT
  Age: 93 Year
  Sex: Female

DRUGS (1)
  1. DABIGATRAN [Suspect]
     Active Substance: DABIGATRAN
     Indication: Atrial fibrillation
     Route: 065

REACTIONS (1)
  - Incarcerated umbilical hernia [Unknown]
